FAERS Safety Report 11159593 (Version 2)
Quarter: 2015Q2

REPORT INFORMATION
  Report Type: Spontaneous
  Country: US (occurrence: US)
  Receive Date: 20150603
  Receipt Date: 20150626
  Transmission Date: 20150821
  Serious: Yes (Hospitalization)
  Sender: FDA-Public Use
  Company Number: US-BAYER-2015-277769

PATIENT
  Sex: Female

DRUGS (1)
  1. FINACEA [Suspect]
     Active Substance: AZELAIC ACID
     Indication: ROSACEA
     Dosage: UNK, TWICE DAILY
     Route: 061

REACTIONS (9)
  - Product quality issue [None]
  - Therapeutic response unexpected [None]
  - Rash [None]
  - Presyncope [None]
  - Skin discolouration [Recovering/Resolving]
  - Product packaging quantity issue [None]
  - Product physical consistency issue [None]
  - Product container issue [None]
  - Iodine allergy [None]
